FAERS Safety Report 6907377-3 (Version None)
Quarter: 2010Q3

REPORT INFORMATION
  Report Type: 
  Country: None (occurrence: None)
  Receive Date: 20100802
  Receipt Date: 20100723
  Transmission Date: 20110219
  Serious: Yes (Other)
  Sender: FDA-Public Use
  Company Number: 201007AGG00942

PATIENT
  Sex: Female

DRUGS (1)
  1. TIROFIBAN HYDROCHLORIDE (AGGRASTAT (TIROFIBAN HCL)) [Suspect]
     Dosage: INTRAVENOUS (NOT OTHERWISE SPECIFIED)
     Route: 042

REACTIONS (3)
  - DEVICE OCCLUSION [None]
  - DRUG INEFFECTIVE [None]
  - THROMBOSIS IN DEVICE [None]
